FAERS Safety Report 9802872 (Version 1)
Quarter: 2014Q1

REPORT INFORMATION
  Report Type: Spontaneous
  Country: US (occurrence: None)
  Receive Date: 20140106
  Receipt Date: 20140106
  Transmission Date: 20141002
  Serious: Yes (Death)
  Sender: FDA-Public Use
  Company Number: None

PATIENT
  Sex: Female

DRUGS (1)
  1. TAFINLAR [Suspect]
     Indication: SKIN CANCER
     Route: 048
     Dates: start: 20131206, end: 20140103

REACTIONS (2)
  - Disease progression [None]
  - Unevaluable event [None]
